FAERS Safety Report 6792916-6 (Version None)
Quarter: 2010Q2

REPORT INFORMATION
  Report Type: 
  Country: None (occurrence: None)
  Receive Date: 20100624
  Receipt Date: 20081112
  Transmission Date: 20101027
  Serious: Yes (Other)
  Sender: FDA-Public Use
  Company Number: US-PFIZER INC-2008083635

PATIENT
  Sex: Female
  Weight: 62 kg

DRUGS (5)
  1. DEPO-PROVERA SUSPENSION/INJ [Suspect]
     Indication: CONTRACEPTION
     Dosage: EVERY 11-13 WEEKS, FIRST INJECTION
     Route: 030
     Dates: start: 20080122, end: 20080122
  2. DEPO-PROVERA SUSPENSION/INJ [Suspect]
     Dosage: EVERY 11-13 WEEKS
     Route: 030
     Dates: start: 20080409, end: 20080409
  3. DEPO-PROVERA SUSPENSION/INJ [Suspect]
     Dosage: EVERY 11-13 WEEKS
     Route: 030
     Dates: start: 20080622, end: 20080622
  4. DEPO-PROVERA SUSPENSION/INJ [Suspect]
     Dosage: MOST RECENT INJECTION
     Route: 030
     Dates: start: 20080911, end: 20080911
  5. VITAMINS [Concomitant]

REACTIONS (2)
  - DRUG INEFFECTIVE [None]
  - UNINTENDED PREGNANCY [None]
